FAERS Safety Report 15364925 (Version 1)
Quarter: 2018Q3

REPORT INFORMATION
  Report Type: Report from Study
  Country: None (occurrence: CH)
  Receive Date: 20180910
  Receipt Date: 20180910
  Transmission Date: 20181010
  Serious: Yes (Hospitalization)
  Sender: FDA-Public Use
  Company Number: CH-ABBVIE-18S-151-2473765-00

PATIENT
  Age: 81 Year
  Sex: Female

DRUGS (4)
  1. DUODOPA [Suspect]
     Active Substance: CARBIDOPA\LEVODOPA
     Indication: PARKINSONISM
     Route: 050
     Dates: start: 20160127
  2. DUODOPA [Suspect]
     Active Substance: CARBIDOPA\LEVODOPA
     Route: 050
     Dates: end: 20160824
  3. DUODOPA [Suspect]
     Active Substance: CARBIDOPA\LEVODOPA
     Dosage: MD: 7.5ML;CD?DAY: 3.5ML/H; ED:?2.0ML
     Route: 050
     Dates: start: 20160824, end: 20180516
  4. DUODOPA [Suspect]
     Active Substance: CARBIDOPA\LEVODOPA
     Dosage: MD: 4.5ML;CD?DAY: 3.9ML/H; ED: 2.0ML
     Route: 050
     Dates: start: 20180516

REACTIONS (2)
  - Musculoskeletal chest pain [Unknown]
  - Device alarm issue [Recovered/Resolved]

NARRATIVE: CASE EVENT DATE: 201808
